FAERS Safety Report 7156196-4 (Version None)
Quarter: 2010Q4

REPORT INFORMATION
  Report Type: 
  Country: None (occurrence: None)
  Receive Date: 20101214
  Receipt Date: 20101206
  Transmission Date: 20110411
  Serious: Yes (Disabling)
  Sender: FDA-Public Use
  Company Number: NO-ASTRAZENECA-2010SE58001

PATIENT
  Age: 547 Month
  Sex: Male

DRUGS (3)
  1. ENTOCORT EC [Suspect]
     Indication: CROHN'S DISEASE
     Route: 048
  2. ENTOCORT EC [Suspect]
     Route: 048
     Dates: start: 20090511
  3. IMUREL [Concomitant]
     Indication: CROHN'S DISEASE

REACTIONS (4)
  - ASTIGMATISM [None]
  - CATARACT [None]
  - VISION BLURRED [None]
  - VISUAL FIELD DEFECT [None]
